FAERS Safety Report 18006042 (Version 1)
Quarter: 2020Q3

REPORT INFORMATION
  Report Type: Spontaneous
  Country: US (occurrence: US)
  Receive Date: 20200709
  Receipt Date: 20200709
  Transmission Date: 20201103
  Serious: Yes (Hospitalization)
  Sender: FDA-Public Use
  Company Number: None

PATIENT
  Age: 55 Year
  Sex: Male

DRUGS (8)
  1. NYSTATIN. [Concomitant]
     Active Substance: NYSTATIN
  2. DOK [Concomitant]
     Active Substance: DOCUSATE SODIUM
  3. MG?PLUS [Concomitant]
  4. ASPIRIN. [Concomitant]
     Active Substance: ASPIRIN
  5. VALGANCICLOV [Concomitant]
  6. TACROLIMUS 1MG CAP [Suspect]
     Active Substance: TACROLIMUS
     Route: 048
  7. PREDNISONE. [Concomitant]
     Active Substance: PREDNISONE
  8. MYCOPHENOLATE 500MG TAB [Suspect]
     Active Substance: MYCOPHENOLIC ACID
     Indication: LIVER TRANSPLANT
     Route: 048

REACTIONS (2)
  - Liver transplant [None]
  - Hepatic failure [None]

NARRATIVE: CASE EVENT DATE: 20200705
